FAERS Safety Report 6057195-6 (Version None)
Quarter: 2009Q1

REPORT INFORMATION
  Report Type: 
  Country: None (occurrence: None)
  Receive Date: 20090129
  Receipt Date: 20080304
  Transmission Date: 20090719
  Serious: No
  Sender: FDA-Public Use
  Company Number: A0713303A

PATIENT
  Age: 55 Year
  Sex: Male

DRUGS (2)
  1. WELLBUTRIN [Suspect]
     Dosage: 1TAB THREE TIMES PER DAY
     Route: 048
     Dates: start: 20080226
  2. STATINS [Concomitant]

REACTIONS (1)
  - TREMOR [None]
